FAERS Safety Report 8923670 (Version 1)
Quarter: 2012Q4

REPORT INFORMATION
  Report Type: Spontaneous
  Country: US (occurrence: None)
  Receive Date: 20121109
  Receipt Date: 20121109
  Transmission Date: 20130627
  Serious: Yes (Other)
  Sender: FDA-Public Use
  Company Number: 2012S1000049

PATIENT
  Age: 47 Year
  Sex: Female

DRUGS (2)
  1. CUBICIN [Suspect]
     Indication: BACTEREMIA
     Dosage: 6 MG/KG;     ; IV
     Route: 042
  2. VANCOMYCIN [Suspect]
     Dosage: ;Q8H; IV
     Route: 042

REACTIONS (4)
  - Hypertension [None]
  - Liver function test abnormal [None]
  - Blood alkaline phosphatase increased [None]
  - Aspartate aminotransferase increased [None]
